FAERS Safety Report 11628022 (Version 1)
Quarter: 2015Q4

REPORT INFORMATION
  Report Type: Spontaneous
  Country: CA (occurrence: None)
  Receive Date: 20151013
  Receipt Date: 20151013
  Transmission Date: 20160304
  Serious: Yes (Disabling, Other)
  Sender: FDA-Public Use
  Company Number: None

PATIENT
  Age: 24 Year
  Sex: Female
  Weight: 43.09 kg

DRUGS (8)
  1. MAGNESIUM [Concomitant]
     Active Substance: MAGNESIUM
  2. CLARITIN [Concomitant]
     Active Substance: LORATADINE
  3. FISH OIL [Concomitant]
     Active Substance: FISH OIL
  4. SPIRULINA [Concomitant]
     Active Substance: SPIRULINA
  5. FLUOROQUINOLONE ANTIBIOTIC CIPROFLOXACIN 500MG [Suspect]
     Active Substance: CIPROFLOXACIN
     Indication: URINARY TRACT INFECTION
     Dosage: 2 500 MG TABLETS
     Route: 048
     Dates: start: 20150929, end: 20151006
  6. AMOXICILLIN. [Concomitant]
     Active Substance: AMOXICILLIN
  7. CRANBERRY EXTRACT [Concomitant]
     Active Substance: CRANBERRY JUICE
  8. D-MANNOSE [Concomitant]

REACTIONS (13)
  - Arthralgia [None]
  - Musculoskeletal pain [None]
  - Neck pain [None]
  - Musculoskeletal stiffness [None]
  - Ligament pain [None]
  - Pain in extremity [None]
  - Alopecia [None]
  - Dysstasia [None]
  - Spinal pain [None]
  - Gait disturbance [None]
  - Joint range of motion decreased [None]
  - Tendon pain [None]
  - Joint crepitation [None]

NARRATIVE: CASE EVENT DATE: 20150929
